FAERS Safety Report 10265168 (Version 1)
Quarter: 2014Q2

REPORT INFORMATION
  Report Type: Spontaneous
  Country: NL (occurrence: NL)
  Receive Date: 20140627
  Receipt Date: 20140627
  Transmission Date: 20141212
  Serious: Yes (Death)
  Sender: FDA-Public Use
  Company Number: NL-AMGEN-NLDSP2014048076

PATIENT
  Sex: 0

DRUGS (2)
  1. NEULASTA [Suspect]
     Indication: PROPHYLAXIS
     Dosage: 10 MG/ML, INJVLST WWSP 0.6ML, EVERY THREE WEEKS
     Route: 058
     Dates: start: 20140605, end: 20140625
  2. ARANESP [Suspect]
     Indication: NEPHROGENIC ANAEMIA
     Dosage: 200 MCG/ML, 60 INJVLST WWSP 0.3ML, EVERY WEEK
     Route: 058
     Dates: start: 20140227, end: 20140625

REACTIONS (1)
  - Death [Fatal]
